FAERS Safety Report 10227749 (Version 1)
Quarter: 2014Q2

REPORT INFORMATION
  Report Type: Spontaneous
  Country: US (occurrence: None)
  Receive Date: 20140609
  Receipt Date: 20140609
  Transmission Date: 20141212
  Serious: No
  Sender: FDA-Public Use
  Company Number: None

PATIENT
  Age: 68 Year
  Sex: Male

DRUGS (1)
  1. GABAPENTIN [Suspect]
     Indication: BACK PAIN
     Dosage: 3 CAPSULES ONCE DAILY TAKEN BY MOUTH
     Route: 048
     Dates: start: 20130102

REACTIONS (4)
  - Dizziness [None]
  - Tremor [None]
  - Coordination abnormal [None]
  - Somnolence [None]
